FAERS Safety Report 8490251-1 (Version None)
Quarter: 2012Q3

REPORT INFORMATION
  Report Type: 
  Country: None (occurrence: None)
  Receive Date: 20120705
  Receipt Date: 20120112
  Transmission Date: 20120928
  Serious: No
  Sender: FDA-Public Use
  Company Number: US-BAUSCH-2012BL000855

PATIENT
  Sex: Female

DRUGS (1)
  1. OPCON-A [Suspect]
     Indication: OCULAR HYPERAEMIA
     Route: 047
     Dates: start: 20090101

REACTIONS (4)
  - OCULAR ICTERUS [None]
  - OFF LABEL USE [None]
  - LACRIMATION INCREASED [None]
  - EYE IRRITATION [None]
